FAERS Safety Report 8763917 (Version 1)
Quarter: 2012Q4

REPORT INFORMATION
  Report Type: 
  Country: US (occurrence: US)
  Receive Date: 20120828
  Receipt Date: 20120828
  Transmission Date: 20130627
  Serious: Yes (Other)
  Sender: FDA-Public Use
  Company Number: US-ELI_LILLY_AND_COMPANY-US201108003416

PATIENT
  Sex: Female

DRUGS (5)
  1. FORTEO [Suspect]
     Indication: OSTEOPOROSIS
     Dosage: 20 ug, qd
     Dates: start: 20110728
  2. FORTEO [Suspect]
     Dosage: 20 ug, qd
     Dates: end: 201208
  3. VITAMIN D [Concomitant]
  4. MULTIVITAMIN [Concomitant]
  5. GLUCOSAMINE CHONDROITIN [Concomitant]

REACTIONS (4)
  - Rhabdomyosarcoma [Not Recovered/Not Resolved]
  - Pain in extremity [Unknown]
  - Skin mass [Unknown]
  - Sleep disorder [Unknown]
